FAERS Safety Report 12137384 (Version 1)
Quarter: 2016Q1

REPORT INFORMATION
  Report Type: Spontaneous
  Country: US (occurrence: None)
  Receive Date: 20160301
  Receipt Date: 20160301
  Transmission Date: 20160526
  Serious: Yes (Hospitalization)
  Sender: FDA-Public Use
  Company Number: None

PATIENT
  Age: 46 Year
  Sex: Male
  Weight: 94.5 kg

DRUGS (6)
  1. CANAGLIFOZIN 300 MG [Suspect]
     Active Substance: CANAGLIFLOZIN
     Route: 048
  2. PRAVASTATIN [Concomitant]
     Active Substance: PRAVASTATIN\PRAVASTATIN SODIUM
  3. LEVOTHYROXINE. [Concomitant]
     Active Substance: LEVOTHYROXINE
  4. TRAZODONE [Concomitant]
     Active Substance: TRAZODONE HYDROCHLORIDE
  5. METFORMIN [Concomitant]
     Active Substance: METFORMIN HYDROCHLORIDE
  6. HUMALOG [Concomitant]
     Active Substance: INSULIN LISPRO

REACTIONS (9)
  - Confusional state [None]
  - Dyspnoea [None]
  - Anion gap increased [None]
  - Blood glucose increased [None]
  - Pneumonia [None]
  - Nausea [None]
  - Upper respiratory tract infection [None]
  - Blood potassium increased [None]
  - Drug dose omission [None]

NARRATIVE: CASE EVENT DATE: 20151201
